FAERS Safety Report 10757226 (Version 2)
Quarter: 2015Q1

REPORT INFORMATION
  Report Type: Spontaneous
  Country: GB (occurrence: None)
  Receive Date: 20150130
  Receipt Date: 20150223
  Transmission Date: 20150721
  Serious: Yes (Other)
  Sender: FDA-Public Use
  Company Number: 2727302

PATIENT
  Age: 78 Year
  Sex: Male
  Weight: 60 kg

DRUGS (2)
  1. MEROPENEM. [Suspect]
     Active Substance: MEROPENEM
     Indication: OSTEOMYELITIS
     Dosage: ?2 G GRAM(S) INTRAVENOUS (NOT OTHERWISE SPECIFIED)?
     Route: 042
     Dates: start: 20141019
  2. OLANZAPINE. [Suspect]
     Active Substance: OLANZAPINE
     Indication: AGITATION
     Route: 048
     Dates: start: 20141203, end: 20150108

REACTIONS (2)
  - Eosinophilia [None]
  - Drug interaction [None]
